FAERS Safety Report 7877693 (Version 3)
Quarter: 2012Q4

REPORT INFORMATION
  Report Type: 
  Country: JP (occurrence: US)
  Receive Date: 20110330
  Receipt Date: 20120918
  Transmission Date: 20130627
  Serious: Yes (Hospitalization)
  Sender: FDA-Public Use
  Company Number: US-JNJFOC-20110309908

PATIENT
  Sex: Female

DRUGS (5)
  1. LEVAQUIN [Suspect]
     Indication: LUNG INFECTION
     Route: 042
     Dates: start: 20100112
  2. LEVAQUIN [Suspect]
     Indication: BRONCHITIS
     Route: 065
  3. METHYLPREDNISOLONE [Suspect]
     Indication: LUNG INFECTION
     Route: 042
     Dates: start: 20100112
  4. PREDNISONE [Suspect]
     Indication: LUNG INFECTION
     Route: 065
  5. AVELOX [Suspect]
     Indication: PRODUCT USED FOR UNKNOWN INDICATION
     Route: 048

REACTIONS (9)
  - Stevens-Johnson syndrome [Unknown]
  - Hernia [Unknown]
  - Hypertension [Unknown]
  - Pain in extremity [Unknown]
  - Tendon pain [Unknown]
  - Choking [Unknown]
  - Dyspnoea [Unknown]
  - Increased upper airway secretion [Unknown]
  - Drug ineffective [Unknown]
